FAERS Safety Report 14338501 (Version 2)
Quarter: 2018Q1

REPORT INFORMATION
  Report Type: Spontaneous
  Country: PT (occurrence: PT)
  Receive Date: 20171229
  Receipt Date: 20180206
  Transmission Date: 20180509
  Serious: Yes (Disabling)
  Sender: FDA-Public Use
  Company Number: PT-009507513-1712PRT010227

PATIENT
  Age: 59 Year
  Sex: Male

DRUGS (1)
  1. DIPROFOS DEPOT [Suspect]
     Active Substance: BETAMETHASONE DIPROPIONATE\BETAMETHASONE SODIUM PHOSPHATE
     Indication: ARTHRALGIA
     Dosage: 1 SINGLE DOSE
     Dates: start: 20171116

REACTIONS (9)
  - Blood glucose increased [Not Recovered/Not Resolved]
  - Weight decreased [Recovering/Resolving]
  - Sexual dysfunction [Unknown]
  - Depressed mood [Unknown]
  - Asthenia [Recovered/Resolved]
  - Glycosylated haemoglobin increased [None]
  - Vitamin D decreased [Not Recovered/Not Resolved]
  - Polyuria [Recovered/Resolved]
  - Muscle atrophy [Not Recovered/Not Resolved]

NARRATIVE: CASE EVENT DATE: 2017
